FAERS Safety Report 11888188 (Version 1)
Quarter: 2016Q1

REPORT INFORMATION
  Report Type: Spontaneous
  Country: US (occurrence: None)
  Receive Date: 20160104
  Receipt Date: 20160104
  Transmission Date: 20160526
  Serious: Yes (Disabling)
  Sender: FDA-Public Use
  Company Number: None

PATIENT
  Age: 54 Year
  Sex: Female
  Weight: 71.67 kg

DRUGS (4)
  1. CYCLOBENZAPRINE 10MG KVKT [Suspect]
     Active Substance: CYCLOBENZAPRINE
     Indication: FIBROMYALGIA
     Dosage: 1
     Route: 048
     Dates: start: 20151218, end: 20151220
  2. TRAMADOL HYDROCHLORIDE. [Suspect]
     Active Substance: TRAMADOL HYDROCHLORIDE
     Indication: FIBROMYALGIA
     Dosage: 1-2
     Route: 048
     Dates: start: 20151218, end: 20151220
  3. CPAP [Concomitant]
     Active Substance: DEVICE
  4. CYCLOBENZAPRINE 10MG KVKT [Suspect]
     Active Substance: CYCLOBENZAPRINE
     Indication: PAIN
     Dosage: 1
     Route: 048
     Dates: start: 20151218, end: 20151220

REACTIONS (6)
  - Headache [None]
  - Disorientation [None]
  - Myalgia [None]
  - Intentional product misuse [None]
  - Bone pain [None]
  - Condition aggravated [None]

NARRATIVE: CASE EVENT DATE: 20151221
